FAERS Safety Report 12855725 (Version 2)
Quarter: 2016Q4

REPORT INFORMATION
  Report Type: Spontaneous
  Country: GB (occurrence: GB)
  Receive Date: 20161018
  Receipt Date: 20161024
  Transmission Date: 20170207
  Serious: Yes (Life-Threatening, Hospitalization)
  Sender: FDA-Public Use
  Company Number: GB-JNJFOC-20161011663

PATIENT
  Age: 39 Year
  Sex: Male

DRUGS (4)
  1. PARACETAMOL [Suspect]
     Active Substance: ACETAMINOPHEN
     Route: 065
  2. PARACETAMOL [Suspect]
     Active Substance: ACETAMINOPHEN
     Indication: INTENTIONAL OVERDOSE
     Dosage: 24.0 UNITS UNSPECIFIED
     Route: 065
     Dates: start: 20161003, end: 20161003
  3. RISPERIDONE. [Suspect]
     Active Substance: RISPERIDONE
     Indication: INTENTIONAL OVERDOSE
     Dosage: 41.0 UNITS UNSPECIFIED
     Route: 065
     Dates: start: 20161003, end: 20161003
  4. CHLORPROMAZINE HYDROCHLORIDE. [Suspect]
     Active Substance: CHLORPROMAZINE HYDROCHLORIDE
     Indication: INTENTIONAL OVERDOSE
     Dosage: 41.0 UNITS UNSPECIFIED
     Route: 065
     Dates: start: 20161003, end: 20161003

REACTIONS (3)
  - Haematemesis [Recovering/Resolving]
  - Seizure [Recovering/Resolving]
  - Intentional product use issue [Recovering/Resolving]

NARRATIVE: CASE EVENT DATE: 20161003
